FAERS Safety Report 17787775 (Version 1)
Quarter: 2020Q2

REPORT INFORMATION
  Report Type: Spontaneous
  Country: NL (occurrence: NL)
  Receive Date: 20200514
  Receipt Date: 20200514
  Transmission Date: 20200714
  Serious: Yes (Hospitalization, Other)
  Sender: FDA-Public Use
  Company Number: NVSC2020NL127794

PATIENT
  Age: 15 Month
  Sex: Female
  Weight: 9.7 kg

DRUGS (2)
  1. CLINDAMYCIN. [Suspect]
     Active Substance: CLINDAMYCIN
     Indication: STREPTOCOCCAL INFECTION
     Dosage: 135 MG, Q8H (3DD 135 MG)
     Route: 048
     Dates: start: 20191009, end: 20191019
  2. BENZYLPENICILLIN [Suspect]
     Active Substance: PENICILLIN G
     Indication: STREPTOCOCCAL INFECTION
     Dosage: 1000000 IU, Q6H (4DD 1.000.000 IE)
     Route: 042
     Dates: start: 20190925, end: 20191019

REACTIONS (1)
  - Drug reaction with eosinophilia and systemic symptoms [Recovering/Resolving]

NARRATIVE: CASE EVENT DATE: 20191001
